FAERS Safety Report 7207487-X (Version None)
Quarter: 2010Q4

REPORT INFORMATION
  Report Type: 
  Country: None (occurrence: None)
  Receive Date: 20101221
  Receipt Date: 20101215
  Transmission Date: 20110411
  Serious: Yes (Death)
  Sender: FDA-Public Use
  Company Number: 2010SP030767

PATIENT
  Age: 76 Year
  Sex: Male

DRUGS (13)
  1. REFLEX (MIRTAZAPINE /01293201/) [Suspect]
     Indication: DEPRESSION
     Dosage: 15 MG;QD;PO, 30 MG;QD;PO
     Route: 048
     Dates: start: 20100427, end: 20100503
  2. REFLEX (MIRTAZAPINE /01293201/) [Suspect]
     Indication: DEPRESSION
     Dosage: 15 MG;QD;PO, 30 MG;QD;PO
     Route: 048
     Dates: start: 20100504, end: 20100525
  3. CYMBALTA [Suspect]
     Indication: PRODUCT USED FOR UNKNOWN INDICATION
     Dosage: 20 MG;QD;PO
     Route: 048
     Dates: start: 20100706, end: 20100810
  4. RIFAMPICIN [Concomitant]
  5. ISONIAZID [Concomitant]
  6. ETHAMBUTOL HYDROCHLORIDE [Concomitant]
  7. HYDROCHLORIDE [Concomitant]
  8. LANSOPRAZOLE [Concomitant]
  9. SULPIRIDE [Concomitant]
  10. PYRIDOXAL PHOSPHATE [Concomitant]
  11. FOLIC ACID [Concomitant]
  12. URSODIOL [Concomitant]
  13. CHINESE HERBAL MEDICINE [Concomitant]

REACTIONS (4)
  - ANAEMIA [None]
  - CONDITION AGGRAVATED [None]
  - MYELODYSPLASTIC SYNDROME [None]
  - NEUTROPHIL COUNT DECREASED [None]
